FAERS Safety Report 8593442-4 (Version None)
Quarter: 2012Q3

REPORT INFORMATION
  Report Type: 
  Country: None (occurrence: None)
  Receive Date: 20120814
  Receipt Date: 20120801
  Transmission Date: 20120928
  Serious: No
  Sender: FDA-Public Use
  Company Number: US-ASTRAZENECA-2012SE54673

PATIENT
  Age: 29 Year
  Sex: Female
  Weight: 56.7 kg

DRUGS (7)
  1. SEROQUEL [Suspect]
     Indication: SLEEP DISORDER
     Route: 048
     Dates: start: 20080101
  2. SEROQUEL [Suspect]
     Route: 048
  3. XANAX [Concomitant]
     Dosage: ONCE
  4. SEROQUEL [Suspect]
     Route: 048
  5. SEROQUEL [Suspect]
     Route: 048
     Dates: start: 20100101
  6. SEROQUEL [Suspect]
     Route: 048
     Dates: start: 20110101, end: 20120701
  7. LORTAB [Concomitant]
     Indication: PAIN
     Dosage: AS NEEDED

REACTIONS (12)
  - LIBIDO INCREASED [None]
  - INTENTIONAL DRUG MISUSE [None]
  - FEELING ABNORMAL [None]
  - BLOOD CHOLESTEROL ABNORMAL [None]
  - BLOOD FOLLICLE STIMULATING HORMONE INCREASED [None]
  - PAIN [None]
  - VAGINAL HAEMORRHAGE [None]
  - THYROID FUNCTION TEST ABNORMAL [None]
  - MICTURITION URGENCY [None]
  - URINARY TRACT INFECTION [None]
  - BLOOD PROLACTIN INCREASED [None]
  - URINE OUTPUT INCREASED [None]
